FAERS Safety Report 6724883-5 (Version None)
Quarter: 2010Q2

REPORT INFORMATION
  Report Type: 
  Country: None (occurrence: None)
  Receive Date: 20100513
  Receipt Date: 20100513
  Transmission Date: 20101027
  Serious: Yes (Hospitalization)
  Sender: FDA-Public Use
  Company Number: None

PATIENT
  Sex: Female
  Weight: 60 kg

DRUGS (2)
  1. CARBOPLATIN [Suspect]
  2. LOMOTIL [Concomitant]

REACTIONS (3)
  - DIARRHOEA [None]
  - HAEMORRHOIDS [None]
  - RECTAL HAEMORRHAGE [None]
